FAERS Safety Report 15347158 (Version 1)
Quarter: 2018Q3

REPORT INFORMATION
  Report Type: Spontaneous
  Country: US (occurrence: US)
  Receive Date: 20180904
  Receipt Date: 20180904
  Transmission Date: 20181010
  Serious: No
  Sender: FDA-Public Use
  Company Number: US-BAYER-2018-164661

PATIENT
  Age: 62 Year
  Sex: Male
  Weight: 66 kg

DRUGS (6)
  1. PROTONIX [Concomitant]
     Active Substance: PANTOPRAZOLE SODIUM
  2. MIRALAX [Suspect]
     Active Substance: POLYETHYLENE GLYCOL 3350
     Indication: COLONOSCOPY
     Dosage: UNK, QD
     Dates: start: 2003, end: 20180821
  3. MIRALAX [Suspect]
     Active Substance: POLYETHYLENE GLYCOL 3350
     Indication: COLONOSCOPY
     Dosage: 0.75 DF, UNK
     Dates: start: 20180828, end: 20180829
  4. SIMVASTATIN. [Concomitant]
     Active Substance: SIMVASTATIN
  5. MIRALAX [Suspect]
     Active Substance: POLYETHYLENE GLYCOL 3350
     Indication: COLONOSCOPY
     Dosage: 238 G, UNK
  6. MIRALAX [Suspect]
     Active Substance: POLYETHYLENE GLYCOL 3350
     Indication: COLONOSCOPY
     Dosage: 1 DF, QD
     Dates: start: 20180827, end: 20180827

REACTIONS (8)
  - Burning sensation [Unknown]
  - Muscle spasms [None]
  - Off label use [Unknown]
  - Underdose [None]
  - Incorrect drug administration duration [Unknown]
  - Burning sensation [None]
  - Product use in unapproved indication [Unknown]
  - Wrong technique in product usage process [None]

NARRATIVE: CASE EVENT DATE: 2003
